FAERS Safety Report 17423419 (Version 1)
Quarter: 2020Q1

REPORT INFORMATION
  Report Type: Spontaneous
  Country: US (occurrence: US)
  Receive Date: 20200217
  Receipt Date: 20200217
  Transmission Date: 20200409
  Serious: No
  Sender: FDA-Public Use
  Company Number: US-AJANTA PHARMA USA INC.-2080453

PATIENT
  Age: 52 Year
  Sex: Female
  Weight: 79.55 kg

DRUGS (1)
  1. FENOFIBRATE (ANDA 210138) [Suspect]
     Active Substance: FENOFIBRATE
     Indication: BLOOD CHOLESTEROL INCREASED
     Route: 048
     Dates: start: 20191005, end: 2019

REACTIONS (4)
  - Drug hypersensitivity [Recovered/Resolved]
  - Lip pruritus [Recovered/Resolved]
  - Urticaria [Recovered/Resolved]
  - Lip swelling [Recovered/Resolved]

NARRATIVE: CASE EVENT DATE: 20191006
